FAERS Safety Report 5645622-5 (Version None)
Quarter: 2008Q1

REPORT INFORMATION
  Report Type: 
  Country: None (occurrence: None)
  Receive Date: 20080229
  Receipt Date: 20080218
  Transmission Date: 20080703
  Serious: Yes (Other)
  Sender: FDA-Public Use
  Company Number: US-PFIZER INC-2008017946

PATIENT

DRUGS (1)
  1. GEODON [Suspect]

REACTIONS (4)
  - DELUSION [None]
  - HYPOAESTHESIA ORAL [None]
  - PARAESTHESIA [None]
  - PARANOIA [None]
